FAERS Safety Report 5304139-8 (Version None)
Quarter: 2007Q2

REPORT INFORMATION
  Report Type: 
  Country: None (occurrence: None)
  Receive Date: 20070423
  Receipt Date: 20070412
  Transmission Date: 20071010
  Serious: Yes (Hospitalization)
  Sender: FDA-Public Use
  Company Number: PHBS2007US06412

PATIENT
  Age: 41 Year
  Sex: Male

DRUGS (5)
  1. CYCLOSPORINE [Suspect]
     Indication: APLASTIC ANAEMIA
     Dosage: 300 MG, ONCE/SINGLE
     Route: 048
  2. ATGAM [Suspect]
     Indication: APLASTIC ANAEMIA
     Dosage: 40 MG/KG, ONCE/SINGLE
  3. METHYLPREDNISOLONE 4MG TAB [Concomitant]
     Indication: APLASTIC ANAEMIA
     Route: 042
  4. CALCIUM CHANNEL BLOCKERS [Concomitant]
  5. DIPHENHYDRAMINE HCL [Concomitant]

REACTIONS (16)
  - ANURIA [None]
  - BLOOD CREATINE PHOSPHOKINASE INCREASED [None]
  - BLOOD CREATININE INCREASED [None]
  - BLOOD UREA INCREASED [None]
  - BLOOD URINE PRESENT [None]
  - CHEST DISCOMFORT [None]
  - CHILLS [None]
  - DYSPNOEA [None]
  - HAEMODIALYSIS [None]
  - HAEMOGLOBIN DECREASED [None]
  - MYALGIA [None]
  - PROTEIN URINE PRESENT [None]
  - RED BLOOD CELLS URINE POSITIVE [None]
  - RENAL FAILURE ACUTE [None]
  - THROMBOCYTOPENIA [None]
  - WHITE BLOOD CELLS URINE POSITIVE [None]
